FAERS Safety Report 5575944-8 (Version None)
Quarter: 2007Q4

REPORT INFORMATION
  Report Type: 
  Country: None (occurrence: None)
  Receive Date: 20071130
  Receipt Date: 20070807
  Transmission Date: 20080405
  Serious: No
  Sender: FDA-Public Use
  Company Number: US200708001754

PATIENT
  Age: 57 Year
  Sex: Male

DRUGS (5)
  1. BYETTA [Suspect]
     Indication: TYPE 2 DIABETES MELLITUS
     Dosage: 5 UG, 2/D, SUBCUTANEOUS, 10 UG, 2/D, SUBCUTANEOUS
     Route: 058
     Dates: start: 20070201, end: 20070301
  2. BYETTA [Suspect]
     Indication: TYPE 2 DIABETES MELLITUS
     Dosage: 5 UG, 2/D, SUBCUTANEOUS, 10 UG, 2/D, SUBCUTANEOUS
     Route: 058
     Dates: start: 20070301
  3. AVANDIA [Concomitant]
  4. ASPIRIN [Concomitant]
  5. NIACIN [Concomitant]

REACTIONS (4)
  - EARLY SATIETY [None]
  - FLUSHING [None]
  - INJECTION SITE HAEMORRHAGE [None]
  - NAUSEA [None]
